FAERS Safety Report 19478212 (Version 1)
Quarter: 2021Q2

REPORT INFORMATION
  Report Type: Spontaneous
  Country: JP (occurrence: JP)
  Receive Date: 20210630
  Receipt Date: 20210630
  Transmission Date: 20210717
  Serious: Yes (Other)
  Sender: FDA-Public Use
  Company Number: JP-PFIZER INC-2021728467

PATIENT
  Sex: Male

DRUGS (1)
  1. VFEND [Suspect]
     Active Substance: VORICONAZOLE
     Indication: BRONCHOPULMONARY ASPERGILLOSIS
     Dosage: 400 (UNIT UNKNOWN), DAILY
     Route: 041
     Dates: end: 20201019

REACTIONS (2)
  - Drug level increased [Recovering/Resolving]
  - Liver function test increased [Recovered/Resolved]
